FAERS Safety Report 13958403 (Version 4)
Quarter: 2018Q1

REPORT INFORMATION
  Report Type: Spontaneous
  Country: US (occurrence: US)
  Receive Date: 20170912
  Receipt Date: 20180103
  Transmission Date: 20180508
  Serious: Yes (Hospitalization, Other)
  Sender: FDA-Public Use
  Company Number: US-PFIZER INC-2017389239

PATIENT
  Age: 56 Year
  Sex: Male
  Weight: 99.77 kg

DRUGS (6)
  1. SUTENT [Suspect]
     Active Substance: SUNITINIB MALATE
     Indication: PANCREATIC CARCINOMA
     Dosage: 37.5 MG, 1X/DAY (TAKE 1 CAPSULE)
     Route: 048
     Dates: start: 201708
  2. SUTENT [Suspect]
     Active Substance: SUNITINIB MALATE
     Dosage: 37.5 MG, 1X/DAY
     Route: 048
     Dates: start: 20170926
  3. SUTENT [Suspect]
     Active Substance: SUNITINIB MALATE
     Dosage: 37.5 MG, 1X/DAY
     Route: 048
     Dates: start: 20170912
  4. SUTENT [Suspect]
     Active Substance: SUNITINIB MALATE
     Dosage: 37.5 MG, 1X/DAY
     Route: 048
     Dates: start: 20171025
  5. SUTENT [Suspect]
     Active Substance: SUNITINIB MALATE
     Dosage: 37.5 MG, 1X/DAY
     Route: 048
     Dates: start: 20171108, end: 201712
  6. SUTENT [Suspect]
     Active Substance: SUNITINIB MALATE
     Dosage: 37.5 MG, 1X/DAY
     Route: 048
     Dates: start: 20171011

REACTIONS (12)
  - Blood pressure increased [Unknown]
  - Blister [Unknown]
  - Neoplasm progression [Unknown]
  - Condition aggravated [Unknown]
  - Peripheral swelling [Unknown]
  - Constipation [Unknown]
  - Skin discolouration [Unknown]
  - Diarrhoea [Unknown]
  - Decreased appetite [Unknown]
  - Arthralgia [Unknown]
  - Musculoskeletal pain [Unknown]
  - Flushing [Unknown]

NARRATIVE: CASE EVENT DATE: 2017
